FAERS Safety Report 4370072-1 (Version None)
Quarter: 2004Q2

REPORT INFORMATION
  Report Type: 
  Country: None (occurrence: None)
  Receive Date: 20040526
  Receipt Date: 20030929
  Transmission Date: 20050107
  Serious: Yes (Hospitalization)
  Sender: FDA-Public Use
  Company Number: SUS1-2003-00322

PATIENT
  Age: 42 Year
  Sex: Male

DRUGS (1)
  1. AGRYLIN (ANAGRELIDE  HYDROCHLORIDE) CAPSULE [Suspect]
     Indication: ESSENTIAL THROMBOCYTHAEMIA
     Dosage: 1.5 MG DAILY, ORAL
     Route: 048
     Dates: start: 20030301, end: 20030901

REACTIONS (1)
  - MYOCARDIAL INFARCTION [None]
